FAERS Safety Report 8428430-1 (Version None)
Quarter: 2012Q2

REPORT INFORMATION
  Report Type: 
  Country: None (occurrence: None)
  Receive Date: 20120612
  Receipt Date: 20120607
  Transmission Date: 20120825
  Serious: No
  Sender: FDA-Public Use
  Company Number: US-BIOGENIDEC-2012BI020287

PATIENT
  Age: 48 Year
  Sex: Male

DRUGS (2)
  1. AMPYRA [Concomitant]
     Indication: GAIT DISTURBANCE
     Dates: start: 20110101
  2. TYSABRI [Suspect]
     Indication: MULTIPLE SCLEROSIS
     Route: 042
     Dates: start: 20120403

REACTIONS (4)
  - SENSATION OF HEAVINESS [None]
  - BACK PAIN [None]
  - MUSCLE TWITCHING [None]
  - GAIT DISTURBANCE [None]
